FAERS Safety Report 21547891 (Version 2)
Quarter: 2022Q4

REPORT INFORMATION
  Report Type: Spontaneous
  Country: US (occurrence: None)
  Receive Date: 20221103
  Receipt Date: 20221214
  Transmission Date: 20230112
  Serious: No
  Sender: FDA-Public Use
  Company Number: 2022A358457

PATIENT
  Sex: Male
  Weight: 83.9 kg

DRUGS (3)
  1. EVUSHELD [Suspect]
     Active Substance: CILGAVIMAB\TIXAGEVIMAB
     Indication: Renal transplant
     Route: 030
     Dates: start: 20220417
  2. EVUSHELD [Suspect]
     Active Substance: CILGAVIMAB\TIXAGEVIMAB
     Indication: Renal transplant
     Route: 030
     Dates: start: 20221025
  3. OXYCODONE [Concomitant]
     Active Substance: OXYCODONE
     Indication: Pain
     Dosage: AT NIGHT
     Route: 065

REACTIONS (3)
  - Dizziness [Not Recovered/Not Resolved]
  - Vertigo [Unknown]
  - Incorrect route of product administration [Unknown]
